FAERS Safety Report 7360823-6 (Version None)
Quarter: 2011Q1

REPORT INFORMATION
  Report Type: 
  Country: None (occurrence: None)
  Receive Date: 20110318
  Receipt Date: 20110314
  Transmission Date: 20110831
  Serious: Yes (Other)
  Sender: FDA-Public Use
  Company Number: US-ELI_LILLY_AND_COMPANY-US201103004578

PATIENT
  Age: 26 Year
  Sex: Male

DRUGS (3)
  1. STRATTERA [Suspect]
     Indication: ATTENTION DEFICIT/HYPERACTIVITY DISORDER
     Dosage: 100 MG, DAILY (1/D)
  2. PROZAC [Interacting]
     Indication: TIC
     Dosage: 20 MG, UNK
  3. STRATTERA [Interacting]
     Dosage: 1 D/F, UNK

REACTIONS (4)
  - ORTHOSTATIC HYPOTENSION [None]
  - DRUG INTERACTION [None]
  - SYNCOPE [None]
  - SINUS TACHYCARDIA [None]
